FAERS Safety Report 12429823 (Version 2)
Quarter: 2016Q2

REPORT INFORMATION
  Report Type: Spontaneous
  Country: FR (occurrence: FR)
  Receive Date: 20160602
  Receipt Date: 20160614
  Transmission Date: 20160815
  Serious: Yes (Other)
  Sender: FDA-Public Use
  Company Number: FR-FRESENIUS KABI-FK201603256

PATIENT
  Age: 39 Year
  Sex: Female

DRUGS (6)
  1. CARBOPLATIN INJECTION 10MG/ML [Suspect]
     Active Substance: CARBOPLATIN
     Indication: METASTASES TO LIVER
  2. PACLITAXEL 6MG/ML CONCENTRATE FOR SOLUTION FOR INFUSION [Suspect]
     Active Substance: PACLITAXEL
     Indication: PAPILLARY SEROUS ENDOMETRIAL CARCINOMA
     Route: 042
     Dates: start: 20150414, end: 20151104
  3. PACLITAXEL 6MG/ML CONCENTRATE FOR SOLUTION FOR INFUSION [Suspect]
     Active Substance: PACLITAXEL
     Indication: METASTASES TO LIVER
  4. CARBOPLATIN INJECTION 10MG/ML [Suspect]
     Active Substance: CARBOPLATIN
     Indication: PAPILLARY SEROUS ENDOMETRIAL CARCINOMA
     Route: 042
     Dates: start: 20150414, end: 20151104
  5. RANITIDINE BASE [Suspect]
     Active Substance: RANITIDINE HYDROCHLORIDE
     Indication: PAPILLARY SEROUS ENDOMETRIAL CARCINOMA
     Dates: start: 20150414, end: 20151104
  6. RANITIDINE BASE [Suspect]
     Active Substance: RANITIDINE HYDROCHLORIDE
     Indication: METASTASES TO LIVER

REACTIONS (4)
  - Pruritus [Recovered/Resolved]
  - Erythema [Recovered/Resolved]
  - Off label use [Recovered/Resolved]
  - Oedema peripheral [Recovered/Resolved]

NARRATIVE: CASE EVENT DATE: 20151104
